FAERS Safety Report 8443205-5 (Version None)
Quarter: 2012Q2

REPORT INFORMATION
  Report Type: 
  Country: None (occurrence: None)
  Receive Date: 20120617
  Receipt Date: 20120606
  Transmission Date: 20120825
  Serious: Yes (Hospitalization)
  Sender: FDA-Public Use
  Company Number: JP-VERTEX PHARMACEUTICALS INC.-AE-2012-005409

PATIENT
  Age: 64 Year
  Sex: Male

DRUGS (9)
  1. TELAVIC (TELAPREVIR) [Suspect]
     Indication: HEPATITIS C
     Route: 048
     Dates: start: 20120405, end: 20120410
  2. AMOBAN [Concomitant]
     Route: 048
  3. RIBAVIRIN [Concomitant]
     Route: 048
     Dates: start: 20120405
  4. URSO 250 [Concomitant]
     Route: 048
  5. LANSOPRAZOLE [Concomitant]
     Route: 048
  6. PEGINTERFERON ALFA-2B [Concomitant]
     Route: 051
     Dates: start: 20120405
  7. GLYCRON [Concomitant]
  8. LENDORMIN [Concomitant]
     Route: 048
  9. BICALUTAMIDE [Concomitant]
     Route: 048

REACTIONS (3)
  - RASH [None]
  - PYREXIA [None]
  - PRURITUS [None]
